FAERS Safety Report 22957240 (Version 5)
Quarter: 2023Q4

REPORT INFORMATION
  Report Type: Spontaneous
  Country: US (occurrence: US)
  Receive Date: 20230919
  Receipt Date: 20231222
  Transmission Date: 20240109
  Serious: Yes (Hospitalization, Other)
  Sender: FDA-Public Use
  Company Number: US-SANOFI-01763267

PATIENT
  Sex: Female

DRUGS (2)
  1. LANTUS SOLOSTAR [Suspect]
     Active Substance: INSULIN GLARGINE
     Dosage: UNK
  2. ELIQUIS [Concomitant]
     Active Substance: APIXABAN
     Indication: Anticoagulant therapy
     Dosage: UNK

REACTIONS (7)
  - Cardiac arrest [Unknown]
  - Osteomyelitis [Unknown]
  - Blood glucose increased [Unknown]
  - Device issue [Unknown]
  - Eye disorder [Unknown]
  - General physical health deterioration [Unknown]
  - Localised infection [Unknown]

NARRATIVE: CASE EVENT DATE: 20230801
